FAERS Safety Report 8843472 (Version 2)
Quarter: 2015Q2

REPORT INFORMATION
  Report Type: Report from Study
  Country: US (occurrence: US)
  Receive Date: 20121016
  Receipt Date: 20150626
  Transmission Date: 20150821
  Serious: Yes (Other)
  Sender: FDA-Public Use
  Company Number: US-ROCHE-1127225

PATIENT
  Sex: Male

DRUGS (3)
  1. NUTROPIN AQ [Suspect]
     Active Substance: SOMATROPIN
     Route: 058
  2. NUTROPIN AQ [Suspect]
     Active Substance: SOMATROPIN
     Indication: GROWTH HORMONE DEFICIENCY
     Route: 058
     Dates: start: 1994
  3. ZYRTEC [Concomitant]
     Active Substance: CETIRIZINE HYDROCHLORIDE
     Route: 048

REACTIONS (14)
  - Seasonal allergy [Unknown]
  - Pharyngeal disorder [Unknown]
  - Nasal congestion [Unknown]
  - Scar [Unknown]
  - Hypoaesthesia [Recovered/Resolved]
  - Spinal pain [Unknown]
  - Back pain [Unknown]
  - Hydrocele [Unknown]
  - Low set ears [Unknown]
  - Rhinorrhoea [Unknown]
  - Blindness [Unknown]
  - Eyelid ptosis [Unknown]
  - Headache [Unknown]
  - Peripheral swelling [Unknown]
